FAERS Safety Report 9352616 (Version 1)
Quarter: 2013Q2

REPORT INFORMATION
  Report Type: Spontaneous
  Country: FR (occurrence: FR)
  Receive Date: 20130618
  Receipt Date: 20130618
  Transmission Date: 20140414
  Serious: Yes (Hospitalization)
  Sender: FDA-Public Use
  Company Number: FR-ROCHE-1237165

PATIENT
  Age: 42 Year
  Sex: Female
  Weight: 57 kg

DRUGS (21)
  1. MABTHERA [Suspect]
     Indication: SYSTEMIC LUPUS ERYTHEMATOSUS
     Route: 042
     Dates: start: 20130318, end: 20130403
  2. MABTHERA [Suspect]
     Indication: ANTIPHOSPHOLIPID SYNDROME
  3. LOXEN [Suspect]
     Indication: HYPERTENSION
     Route: 048
     Dates: start: 20130315, end: 20130405
  4. RENAGEL [Concomitant]
  5. METHYLPREDNISOLONE [Concomitant]
     Dosage: PER DAY
     Route: 065
  6. OXYCONTIN LP [Concomitant]
     Route: 065
  7. OXYNORM [Concomitant]
     Route: 065
  8. SOLUPRED (FRANCE) [Concomitant]
  9. UNFRACTIONATED HEPARIN [Concomitant]
  10. LERCAN [Concomitant]
  11. RAMIPRIL [Concomitant]
  12. DOLIPRANE [Concomitant]
  13. NORSET [Concomitant]
  14. LAROXYL [Concomitant]
  15. LYRICA [Concomitant]
  16. ZOLPIDEM [Concomitant]
  17. FORTUM [Concomitant]
  18. AMIKLIN [Concomitant]
  19. ECULIZUMAB [Concomitant]
     Dosage: ONE INJECTION
     Route: 065
     Dates: start: 20130301
  20. KARDEGIC [Concomitant]
  21. DEPAKINE [Concomitant]

REACTIONS (1)
  - Hepatocellular injury [Recovered/Resolved]
